FAERS Safety Report 13742556 (Version 2)
Quarter: 2018Q2

REPORT INFORMATION
  Report Type: Report from Study
  Country: US (occurrence: US)
  Receive Date: 20170711
  Receipt Date: 20180627
  Transmission Date: 20180711
  Serious: No
  Sender: FDA-Public Use
  Company Number: US-SAOL THERAPEUTICS-2016SAO00255

PATIENT
  Age: 36 Year
  Sex: Male

DRUGS (8)
  1. COMPOUNDED BACLOFEN [Suspect]
     Active Substance: BACLOFEN
     Indication: MUSCLE SPASTICITY
     Dosage: 399.8 ?G, \DAY
     Route: 037
     Dates: start: 20140818, end: 20150126
  2. FISH OIL [Suspect]
     Active Substance: FISH OIL
     Route: 065
  3. GABAPENTIN. [Suspect]
     Active Substance: GABAPENTIN
     Route: 065
  4. COMPOUNDED BACLOFEN [Suspect]
     Active Substance: BACLOFEN
     Dosage: 300.5 ?G, \DAY
     Route: 037
     Dates: start: 20150625
  5. COMPOUNDED BACLOFEN [Suspect]
     Active Substance: BACLOFEN
     Dosage: 350.1 ?G, \DAY
     Dates: start: 20160616
  6. BENADRYL [Suspect]
     Active Substance: DIPHENHYDRAMINE HYDROCHLORIDE
  7. COMPOUNDED BACLOFEN [Suspect]
     Active Substance: BACLOFEN
     Indication: BRAIN INJURY
     Dosage: 249.8 ?G, \DAY
     Route: 037
     Dates: start: 20150126, end: 20150625
  8. COMPOUNDED BACLOFEN [Suspect]
     Active Substance: BACLOFEN
     Dosage: 300.3 ?G, \DAY
     Dates: start: 20151217, end: 20160616

REACTIONS (5)
  - Dysarthria [Recovered/Resolved]
  - Adverse drug reaction [Not Recovered/Not Resolved]
  - Grip strength decreased [Unknown]
  - Implant site extravasation [Not Recovered/Not Resolved]
  - Somnolence [Recovered/Resolved]

NARRATIVE: CASE EVENT DATE: 20150625
